FAERS Safety Report 22352956 (Version 1)
Quarter: 2023Q2

REPORT INFORMATION
  Report Type: Report from Study
  Country: CN (occurrence: CN)
  Receive Date: 20230523
  Receipt Date: 20230523
  Transmission Date: 20230722
  Serious: Yes (Other)
  Sender: FDA-Public Use
  Company Number: CN-JNJFOC-20230546015

PATIENT

DRUGS (2)
  1. REMICADE [Suspect]
     Active Substance: INFLIXIMAB
     Indication: Rheumatoid arthritis
     Dosage: AT WEEKS 0, 2, 6, 14, 22 AND 30; FOR PATIENT^S WEIGHING 67 TO 75 KG, ADMINISTERED 200 MG
     Route: 041
  2. METHOTREXATE [Concomitant]
     Active Substance: METHOTREXATE
     Indication: Rheumatoid arthritis
     Dosage: 7.5 TO 15 MG
     Route: 048

REACTIONS (12)
  - Drug-induced liver injury [Unknown]
  - Tuberculosis [Unknown]
  - Adverse event [Unknown]
  - Adverse event [Unknown]
  - Hepatobiliary disease [Unknown]
  - Liver function test abnormal [Unknown]
  - Alanine aminotransferase increased [Unknown]
  - Aspartate aminotransferase increased [Unknown]
  - Infection [Unknown]
  - Infusion related reaction [Unknown]
  - Drug specific antibody [Unknown]
  - Off label use [Unknown]
